FAERS Safety Report 21520871 (Version 1)
Quarter: 2022Q4

REPORT INFORMATION
  Report Type: Spontaneous
  Country: AR (occurrence: AR)
  Receive Date: 20221028
  Receipt Date: 20221028
  Transmission Date: 20230113
  Serious: Yes (Other)
  Sender: FDA-Public Use
  Company Number: AR-NOVARTISPH-NVSC2022AR241042

PATIENT
  Sex: Female

DRUGS (2)
  1. AFINITOR [Suspect]
     Active Substance: EVEROLIMUS
     Indication: Neuroendocrine carcinoma
     Dosage: 5 MG, QD (HALF) (END OF SEP)
     Route: 065
  2. AFINITOR [Suspect]
     Active Substance: EVEROLIMUS
     Dosage: 10 MG, QD (HALF)
     Route: 065

REACTIONS (6)
  - Lung neoplasm [Recovering/Resolving]
  - Hypersensitivity [Unknown]
  - Eye allergy [Unknown]
  - Erythema [Unknown]
  - Skin exfoliation [Unknown]
  - Wrong technique in product usage process [Unknown]
